FAERS Safety Report 9816663 (Version 2)
Quarter: 2014Q1

REPORT INFORMATION
  Report Type: Spontaneous
  Country: US (occurrence: US)
  Receive Date: 20140114
  Receipt Date: 20140114
  Transmission Date: 20141002
  Serious: Yes (Hospitalization)
  Sender: FDA-Public Use
  Company Number: US-ENDO PHARMACEUTICALS INC.-PERC20130072

PATIENT
  Age: 48 Year
  Sex: Male
  Weight: 79.45 kg

DRUGS (7)
  1. PERCOCET [Suspect]
     Indication: SUICIDE ATTEMPT
     Dosage: 80 TABLETS
     Route: 048
     Dates: start: 20130507, end: 20130508
  2. PERCOCET [Suspect]
     Indication: PAIN
     Dosage: UNKNOWN
     Route: 048
     Dates: end: 20130506
  3. BUTRANS [Suspect]
     Indication: PAIN
     Route: 062
     Dates: end: 20130508
  4. HEROIN [Suspect]
     Indication: DRUG ABUSE
     Dosage: UNKNOWN
     Route: 065
  5. LYRICA [Concomitant]
     Indication: NEUROPATHY PERIPHERAL
     Route: 048
  6. SYNTHROID [Concomitant]
     Indication: HYPOTHYROIDISM
     Route: 048
  7. DEXILANT [Concomitant]
     Indication: GASTROOESOPHAGEAL REFLUX DISEASE
     Route: 048

REACTIONS (2)
  - Toxicity to various agents [Recovered/Resolved]
  - Intentional overdose [Recovered/Resolved]
